FAERS Safety Report 11883595 (Version 1)
Quarter: 2016Q1

REPORT INFORMATION
  Report Type: Spontaneous
  Country: US (occurrence: US)
  Receive Date: 20160101
  Receipt Date: 20160101
  Transmission Date: 20160526
  Serious: Yes (Death, Hospitalization)
  Sender: FDA-Public Use
  Company Number: US-CIPLA LTD.-2015US09821

PATIENT

DRUGS (4)
  1. GEMCITABINE [Suspect]
     Active Substance: GEMCITABINE\GEMCITABINE HYDROCHLORIDE
     Indication: PANCREATIC CARCINOMA
     Dosage: 200MG/M2/WEEK BEFORE DOSE ESCALATION
     Route: 065
  2. GEMCITABINE [Suspect]
     Active Substance: GEMCITABINE\GEMCITABINE HYDROCHLORIDE
     Dosage: SINGLE-AGENT CHEMOTHERAPY
     Route: 065
  3. CETUXIMAB [Suspect]
     Active Substance: CETUXIMAB
     Dosage: 250 MG/M2, WEEKLY MAINTENANCE DOSE
  4. CETUXIMAB [Suspect]
     Active Substance: CETUXIMAB
     Indication: PANCREATIC CARCINOMA
     Dosage: 400 MG/M2, LOADING DOSE

REACTIONS (11)
  - Disease progression [Fatal]
  - Device related infection [Unknown]
  - Bile duct obstruction [Unknown]
  - Erosive oesophagitis [Unknown]
  - Decreased appetite [Unknown]
  - Blood magnesium decreased [Unknown]
  - Odynophagia [Unknown]
  - Jaundice cholestatic [Unknown]
  - Metastases to liver [Unknown]
  - Rash [Unknown]
  - Klebsiella bacteraemia [Unknown]
